FAERS Safety Report 13925906 (Version 1)
Quarter: 2017Q3

REPORT INFORMATION
  Report Type: Spontaneous
  Country: US (occurrence: US)
  Receive Date: 20170831
  Receipt Date: 20170831
  Transmission Date: 20171127
  Serious: Yes (Other)
  Sender: FDA-Public Use
  Company Number: US-BAYER-2017-160947

PATIENT
  Sex: Male

DRUGS (1)
  1. ALKA-SELTZER PLUS DAY NON-DROWSY COLD AND FLU FORMULA [Suspect]
     Active Substance: ACETAMINOPHEN\DEXTROMETHORPHAN HYDROBROMIDE\PHENYLEPHRINE HYDROCHLORIDE
     Dosage: UNK
     Route: 048

REACTIONS (1)
  - Choking [Unknown]
